FAERS Safety Report 9463858 (Version 2)
Quarter: 2013Q3

REPORT INFORMATION
  Report Type: Spontaneous
  Country: AU (occurrence: AU)
  Receive Date: 20130819
  Receipt Date: 20130819
  Transmission Date: 20140515
  Serious: Yes (Life-Threatening, Disabling)
  Sender: FDA-Public Use
  Company Number: AU-PFIZER INC-HQ8270509NOV2001

PATIENT
  Sex: Female
  Weight: 50 kg

DRUGS (1)
  1. EFEXOR XR [Suspect]
     Indication: DEPRESSION
     Dosage: 150 MG DAILY
     Route: 048
     Dates: start: 200010, end: 20011026

REACTIONS (1)
  - Cardiomyopathy [Not Recovered/Not Resolved]
